FAERS Safety Report 5312325-6 (Version None)
Quarter: 2007Q2

REPORT INFORMATION
  Report Type: 
  Country: None (occurrence: None)
  Receive Date: 20070430
  Receipt Date: 20061116
  Transmission Date: 20071010
  Serious: No
  Sender: FDA-Public Use
  Company Number: 2006UW24405

PATIENT
  Sex: Female
  Weight: 106.8 kg

DRUGS (4)
  1. NEXIUM [Suspect]
     Indication: GASTROOESOPHAGEAL REFLUX DISEASE
     Route: 048
     Dates: start: 20061001
  2. NULEV [Concomitant]
     Route: 046
  3. PROVERA [Concomitant]
     Dosage: 10 DAYS A MONTH
  4. GAVISCON [Concomitant]
     Dosage: 2 CHEWABLE TABLETS

REACTIONS (3)
  - DIURETIC EFFECT [None]
  - PRURITUS GENITAL [None]
  - URINARY RETENTION [None]
